FAERS Safety Report 16628152 (Version 1)
Quarter: 2019Q3

REPORT INFORMATION
  Report Type: Spontaneous
  Country: US (occurrence: US)
  Receive Date: 20190724
  Receipt Date: 20190724
  Transmission Date: 20191004
  Serious: No
  Sender: FDA-Public Use
  Company Number: US-IGSA-SR10007714

PATIENT
  Age: 55 Year
  Sex: Female
  Weight: 53 kg

DRUGS (3)
  1. VITAMINS                           /00067501/ [Concomitant]
     Active Substance: VITAMINS
  2. FLEBOGAMMA DIF [Suspect]
     Active Substance: HUMAN IMMUNOGLOBULIN G
     Indication: DERMATOMYOSITIS
     Dosage: UNK
     Dates: start: 201901, end: 201901
  3. ESTROGEN [Concomitant]
     Active Substance: ESTROGENS

REACTIONS (2)
  - Dizziness [Recovered/Resolved]
  - Headache [Recovered/Resolved]

NARRATIVE: CASE EVENT DATE: 201901
